FAERS Safety Report 11782280 (Version 5)
Quarter: 2016Q2

REPORT INFORMATION
  Report Type: Spontaneous
  Country: DE (occurrence: DE)
  Receive Date: 20151127
  Receipt Date: 20160405
  Transmission Date: 20160815
  Serious: Yes (Hospitalization, Other)
  Sender: FDA-Public Use
  Company Number: DE-AMGEN-DEUSP2015125413

PATIENT
  Age: 64 Year
  Sex: Female
  Weight: 59 kg

DRUGS (5)
  1. PROLIA [Suspect]
     Active Substance: DENOSUMAB
     Indication: OSTEOPOROSIS
     Dosage: UNK
     Route: 065
     Dates: start: 201503
  2. DEKRISTOL [Concomitant]
     Active Substance: CHOLECALCIFEROL
     Dosage: 20000 UNK, QWK
  3. NOCTAMIDE [Concomitant]
     Active Substance: LORMETAZEPAM
     Dosage: 2 MG, AT NIGHT
  4. STATIN                             /00036501/ [Concomitant]
     Active Substance: NYSTATIN
     Dosage: UNK UNK, QD
     Dates: start: 201010
  5. CIPRALEX [Concomitant]
     Active Substance: ESCITALOPRAM OXALATE
     Dosage: 10 UNK, QD

REACTIONS (17)
  - Dry gangrene [Not Recovered/Not Resolved]
  - Rash generalised [Unknown]
  - Lipids increased [Unknown]
  - Ear disorder [Unknown]
  - Hypersensitivity [Unknown]
  - Skin disorder [Unknown]
  - Lichenoid keratosis [Unknown]
  - Rash pruritic [Recovered/Resolved]
  - Scab [Unknown]
  - Pruritus generalised [Unknown]
  - Blood immunoglobulin E increased [Unknown]
  - Depression [Unknown]
  - Drug eruption [Unknown]
  - Scar [Unknown]
  - Erythema [Unknown]
  - Nodule [Unknown]
  - Oral disorder [Unknown]

NARRATIVE: CASE EVENT DATE: 201509
